FAERS Safety Report 6952710-X (Version None)
Quarter: 2010Q3

REPORT INFORMATION
  Report Type: 
  Country: None (occurrence: None)
  Receive Date: 20100829
  Receipt Date: 20100601
  Transmission Date: 20110219
  Serious: No
  Sender: FDA-Public Use
  Company Number: US-ABBOTT-10P-163-0645375-00

PATIENT
  Sex: Male
  Weight: 99.88 kg

DRUGS (6)
  1. NIASPAN [Suspect]
     Indication: HIGH DENSITY LIPOPROTEIN DECREASED
     Route: 048
     Dates: start: 20070101, end: 20080101
  2. NIASPAN [Suspect]
     Route: 048
     Dates: start: 20080101, end: 20080101
  3. NIASPAN [Suspect]
     Dosage: BID
     Route: 048
     Dates: start: 20080101, end: 20100501
  4. NIASPAN [Suspect]
     Dosage: BID
     Route: 048
     Dates: start: 20100501, end: 20100512
  5. BENICAR [Concomitant]
     Indication: HYPERTENSION
     Dosage: UNKNOWN STRENGTH
     Route: 048
  6. CYMBALTA [Concomitant]
     Indication: FATIGUE
     Route: 048

REACTIONS (3)
  - DRUG DISPENSING ERROR [None]
  - FLUSHING [None]
  - INCORRECT DOSE ADMINISTERED [None]
